FAERS Safety Report 5145102-X (Version None)
Quarter: 2006Q4

REPORT INFORMATION
  Report Type: 
  Country: None (occurrence: None)
  Receive Date: 20061031
  Receipt Date: 20061020
  Transmission Date: 20070319
  Serious: Yes (Hospitalization, Disabling)
  Sender: FDA-Public Use
  Company Number: 231537

PATIENT
  Age: 76 Year
  Sex: Male

DRUGS (1)
  1. RANIBIZUMAB (RANIBIZUMAB)PWDR + SOLVENT, INJECTION SOLN [Suspect]
     Indication: MACULAR DEGENERATION
     Dosage: INTRAVITREAL
     Dates: start: 20060210

REACTIONS (1)
  - COLON CANCER [None]
